FAERS Safety Report 5849076-5 (Version None)
Quarter: 2008Q3

REPORT INFORMATION
  Report Type: 
  Country: None (occurrence: None)
  Receive Date: 20080819
  Receipt Date: 20080811
  Transmission Date: 20090109
  Serious: Yes (Hospitalization)
  Sender: FDA-Public Use
  Company Number: PHHY2008FR18005

PATIENT
  Sex: Male

DRUGS (4)
  1. GLEEVEC [Suspect]
     Indication: GASTROINTESTINAL STROMAL TUMOUR
     Dosage: 400 MG, QD
     Route: 048
     Dates: start: 20080611
  2. ESOMEPRAZOLE [Concomitant]
     Dosage: 40 MG, QD
     Route: 048
  3. FORLAX [Concomitant]
     Dosage: 4 G, QD
     Route: 048
  4. DURAGESIC-100 [Concomitant]
     Dosage: 25 UG/HR, Q72H
     Route: 062

REACTIONS (13)
  - ABDOMINAL PAIN [None]
  - ABDOMINAL TENDERNESS [None]
  - ANAEMIA [None]
  - ASTHENIA [None]
  - CONFUSIONAL STATE [None]
  - HYPOTENSION [None]
  - LOSS OF CONSCIOUSNESS [None]
  - MALAISE [None]
  - NAUSEA [None]
  - OESOPHAGITIS [None]
  - PEPTIC ULCER [None]
  - TUMOUR HAEMORRHAGE [None]
  - VOMITING [None]
